FAERS Safety Report 22385167 (Version 1)
Quarter: 2023Q2

REPORT INFORMATION
  Report Type: Spontaneous
  Country: CN (occurrence: CN)
  Receive Date: 20230530
  Receipt Date: 20230530
  Transmission Date: 20230722
  Serious: Yes (Other)
  Sender: FDA-Public Use
  Company Number: CN-BRISTOL-MYERS SQUIBB COMPANY-2023-075859

PATIENT
  Age: 43 Year
  Sex: Female
  Weight: 51.8 kg

DRUGS (5)
  1. ABRAXANE [Suspect]
     Active Substance: PACLITAXEL
     Indication: Breast cancer
     Dosage: DOSE : 380 MG;     FREQ : D1 21 DAYS?(ALBUMIN-BOUND PACLITAXEL 260MG/M2 D1 21 DAYS ? 6 CYCLES?FREQUE
     Route: 041
     Dates: start: 20230414, end: 20230515
  2. HERCEPTIN [Suspect]
     Active Substance: TRASTUZUMAB
     Indication: Breast cancer
     Dosage: FIRST DOSE 8MG/KG AND THEN 6MG/KG D1 21 DAYS?FREQUENCY: DOSES RECEIVED: 1, NUMBER OF DAYS USING THE
     Route: 041
     Dates: start: 20230414, end: 20230515
  3. PYROTINIB MALEATE [Suspect]
     Active Substance: PYROTINIB MALEATE
     Indication: Breast cancer
     Dosage: 400MG QD?FREQUENCY: DOSES RECEIVED: 1, NUMBER OF DAYS USING THE DRUG: 21
     Route: 048
     Dates: start: 20230420, end: 20230515
  4. SODIUM CHLORIDE [Concomitant]
     Active Substance: SODIUM CHLORIDE
     Indication: Breast cancer
     Route: 041
     Dates: start: 20230414, end: 20230515
  5. SODIUM CHLORIDE [Concomitant]
     Active Substance: SODIUM CHLORIDE
     Dosage: FREQUENCY: DOSES RECEIVED: 1, NUMBER OF DAYS USING THE DRUG: 21
     Route: 041
     Dates: start: 20230414, end: 20230515

REACTIONS (1)
  - Dermatitis acneiform [Recovered/Resolved]

NARRATIVE: CASE EVENT DATE: 20230421
